FAERS Safety Report 8375540-3 (Version None)
Quarter: 2012Q1

REPORT INFORMATION
  Report Type: 
  Country: None (occurrence: None)
  Receive Date: 20120323
  Receipt Date: 20110726
  Transmission Date: 20120608
  Serious: Yes (Hospitalization, Other)
  Sender: FDA-Public Use
  Company Number: 163-21880-11031115

PATIENT
  Age: 78 Year
  Sex: Male
  Weight: 75.7 kg

DRUGS (2)
  1. REVLIMID [Suspect]
     Indication: MULTIPLE MYELOMA
     Dosage: 10 MG, DAILY X21 DAYS/OFF 7 DAYS, PO; 2.5 MG, 1 IN 2 D, PO
     Route: 048
     Dates: start: 20110601
  2. REVLIMID [Suspect]
     Indication: MULTIPLE MYELOMA
     Dosage: 10 MG, DAILY X21 DAYS/OFF 7 DAYS, PO; 2.5 MG, 1 IN 2 D, PO
     Route: 048
     Dates: start: 20110215

REACTIONS (9)
  - CONSTIPATION [None]
  - DIARRHOEA [None]
  - NAUSEA [None]
  - FATIGUE [None]
  - DECREASED APPETITE [None]
  - FLATULENCE [None]
  - DEPRESSION [None]
  - ASTHENIA [None]
  - RASH [None]
